FAERS Safety Report 20139936 (Version 1)
Quarter: 2021Q4

REPORT INFORMATION
  Report Type: Spontaneous
  Country: US (occurrence: None)
  Receive Date: 20211201
  Receipt Date: 20211201
  Transmission Date: 20220303
  Serious: Yes (Other)
  Sender: FDA-Public Use
  Company Number: None

PATIENT
  Age: 25 Year
  Sex: Male

DRUGS (1)
  1. BUPROPION [Suspect]
     Active Substance: BUPROPION
     Indication: Depression
     Dosage: OTHER QUANTITY : 150 MG;?
     Route: 048
     Dates: start: 20210604, end: 20210618

REACTIONS (4)
  - Insomnia [None]
  - Migraine [None]
  - Suicidal ideation [None]
  - Mental impairment [None]

NARRATIVE: CASE EVENT DATE: 20210618
